FAERS Safety Report 10748871 (Version 1)
Quarter: 2015Q1

REPORT INFORMATION
  Report Type: Spontaneous
  Country: US (occurrence: None)
  Receive Date: 20150128
  Receipt Date: 20150128
  Transmission Date: 20150721
  Serious: Yes (Disabling, Other)
  Sender: FDA-Public Use
  Company Number: None

PATIENT
  Age: 16 Year
  Sex: Female
  Weight: 49.9 kg

DRUGS (1)
  1. XYREM [Suspect]
     Active Substance: SODIUM OXYBATE
     Indication: NARCOLEPSY
     Dosage: 4.5GM DILUTED IN 60MLS WAFER AT BEDTIME
     Route: 048

REACTIONS (5)
  - Agitation [None]
  - Mood altered [None]
  - Depression [None]
  - Anxiety [None]
  - Activities of daily living impaired [None]

NARRATIVE: CASE EVENT DATE: 20141031
